FAERS Safety Report 22687316 (Version 2)
Quarter: 2023Q4

REPORT INFORMATION
  Report Type: Spontaneous
  Country: US (occurrence: US)
  Receive Date: 20230710
  Receipt Date: 20231016
  Transmission Date: 20240109
  Serious: No
  Sender: FDA-Public Use
  Company Number: US-SA-SAC20230706000865

PATIENT
  Sex: Female

DRUGS (1)
  1. DUPIXENT [Suspect]
     Active Substance: DUPILUMAB
     Dosage: 300 MG, FREQUENCY AS OTHER
     Route: 058

REACTIONS (7)
  - Wound [Not Recovered/Not Resolved]
  - Condition aggravated [Unknown]
  - Red blood cell abnormality [Unknown]
  - Lymphadenopathy [Unknown]
  - Skin discolouration [Recovered/Resolved]
  - Brain fog [Unknown]
  - Injection site pain [Unknown]
